FAERS Safety Report 10072675 (Version 2)
Quarter: 2017Q4

REPORT INFORMATION
  Report Type: Spontaneous
  Country: CA (occurrence: CA)
  Receive Date: 20140411
  Receipt Date: 20171221
  Transmission Date: 20180320
  Serious: Yes (Hospitalization)
  Sender: FDA-Public Use
  Company Number: CA-009507513-1404CAN002304

PATIENT
  Age: 51 Year
  Sex: Female

DRUGS (6)
  1. SENOKOT [Concomitant]
     Active Substance: SENNOSIDES
  2. PARIET [Concomitant]
     Active Substance: RABEPRAZOLE SODIUM
  3. DEXAMETHASONE. [Concomitant]
     Active Substance: DEXAMETHASONE
  4. TEMODAL [Suspect]
     Active Substance: TEMOZOLOMIDE
     Dosage: UNK, DOSAGE FORM NOT SPECIFIED
     Route: 065
  5. DILANTIN [Concomitant]
     Active Substance: PHENYTOIN
  6. LOVENOX [Concomitant]
     Active Substance: ENOXAPARIN SODIUM

REACTIONS (3)
  - Haemoglobin decreased [Unknown]
  - Neutrophil count decreased [Unknown]
  - Platelet count decreased [Unknown]

NARRATIVE: CASE EVENT DATE: 2013
